FAERS Safety Report 16000017 (Version 1)
Quarter: 2019Q1

REPORT INFORMATION
  Report Type: Spontaneous
  Country: MY (occurrence: MY)
  Receive Date: 20190225
  Receipt Date: 20190225
  Transmission Date: 20190418
  Serious: Yes (Other)
  Sender: FDA-Public Use
  Company Number: MY-PFIZER INC-2019080720

PATIENT
  Age: 24 Year
  Sex: Female

DRUGS (1)
  1. PROSTIN E2 [Suspect]
     Active Substance: DINOPROSTONE
     Indication: LABOUR INDUCTION
     Route: 067

REACTIONS (1)
  - Bradycardia [Recovered/Resolved]
